FAERS Safety Report 4608125-2 (Version None)
Quarter: 2005Q2

REPORT INFORMATION
  Report Type: 
  Country: None (occurrence: None)
  Receive Date: 20050301
  Receipt Date: 20040225
  Transmission Date: 20051028
  Serious: Yes (Other)
  Sender: FDA-Public Use
  Company Number: BDI-005882

PATIENT
  Age: 20 Year
  Sex: Female
  Weight: 68 kg

DRUGS (2)
  1. ISOVUE-300 [Suspect]
     Indication: COMPUTERISED TOMOGRAM
     Dosage: 150 ML ONCE IV
     Route: 042
     Dates: start: 20040224, end: 20040224
  2. ISOVUE-300 [Suspect]
     Indication: OVARIAN CYST
     Dosage: 150 ML ONCE IV
     Route: 042
     Dates: start: 20040224, end: 20040224

REACTIONS (2)
  - COUGH [None]
  - DYSPNOEA [None]
